FAERS Safety Report 16745817 (Version 1)
Quarter: 2019Q3

REPORT INFORMATION
  Report Type: Spontaneous
  Country: US (occurrence: US)
  Receive Date: 20190827
  Receipt Date: 20190827
  Transmission Date: 20191005
  Serious: Yes (Hospitalization)
  Sender: FDA-Public Use
  Company Number: US-ASTRAZENECA-2019SF20160

PATIENT
  Age: 27705 Day
  Sex: Male
  Weight: 104.3 kg

DRUGS (10)
  1. BYDUREON BCISE [Concomitant]
     Active Substance: EXENATIDE
  2. GLIMEPIRIDE. [Concomitant]
     Active Substance: GLIMEPIRIDE
  3. PRAVASTATIN. [Concomitant]
     Active Substance: PRAVASTATIN
  4. GLUCOSAMINE [Concomitant]
     Active Substance: GLUCOSAMINE
  5. IMFINZI [Suspect]
     Active Substance: DURVALUMAB
     Indication: NON-SMALL CELL LUNG CANCER
     Route: 042
     Dates: start: 201907
  6. SANTURA [Concomitant]
  7. METFORMAIN [Concomitant]
  8. FISH OIL [Concomitant]
     Active Substance: FISH OIL
  9. SINEMET [Concomitant]
     Active Substance: CARBIDOPA\LEVODOPA
  10. ACTOS [Concomitant]
     Active Substance: PIOGLITAZONE HYDROCHLORIDE

REACTIONS (5)
  - Chills [Unknown]
  - Fall [Recovered/Resolved]
  - Pyrexia [Unknown]
  - Muscular weakness [Unknown]
  - Dyspnoea [Unknown]

NARRATIVE: CASE EVENT DATE: 20190817
